FAERS Safety Report 12313723 (Version 1)
Quarter: 2016Q2

REPORT INFORMATION
  Report Type: Spontaneous
  Country: US (occurrence: US)
  Receive Date: 20160428
  Receipt Date: 20160428
  Transmission Date: 20160815
  Serious: Yes (Other)
  Sender: FDA-Public Use
  Company Number: US-CONCORDIA PHARMACEUTICALS INC.-CO-KX-US-2016-013

PATIENT
  Age: 59 Year
  Sex: Male

DRUGS (2)
  1. SORBITOL. [Concomitant]
     Active Substance: SORBITOL
  2. SODIUM POLYSTYRENE SULFONATE. [Suspect]
     Active Substance: SODIUM POLYSTYRENE SULFONATE
     Indication: PRODUCT USED FOR UNKNOWN INDICATION
     Route: 065

REACTIONS (3)
  - Haematemesis [None]
  - Oesophageal ulcer [None]
  - Biopsy oesophagus abnormal [None]
